FAERS Safety Report 5368597-5 (Version None)
Quarter: 2007Q2

REPORT INFORMATION
  Report Type: 
  Country: None (occurrence: None)
  Receive Date: 20070620
  Receipt Date: 20070611
  Transmission Date: 20071010
  Serious: Yes (Other)
  Sender: FDA-Public Use
  Company Number: GXKR2007GB05065

PATIENT
  Age: 41 Year
  Sex: Male

DRUGS (3)
  1. SIMVASTATIN [Suspect]
     Indication: HYPERCHOLESTEROLAEMIA
     Dosage: 10 MG, DAILY
  2. LISINOPRIL [Concomitant]
  3. BEZAFIBRATE (BEZAFIBRATE) [Concomitant]

REACTIONS (5)
  - BACK PAIN [None]
  - BLOOD CREATINE PHOSPHOKINASE INCREASED [None]
  - GLYCOGEN STORAGE DISEASE TYPE II [None]
  - MUSCLE SPASMS [None]
  - MYOPATHY [None]
